FAERS Safety Report 18073337 (Version 4)
Quarter: 2020Q3

REPORT INFORMATION
  Report Type: Spontaneous
  Country: US (occurrence: US)
  Receive Date: 20200727
  Receipt Date: 20200918
  Transmission Date: 20201103
  Serious: Yes (Hospitalization, Other)
  Sender: FDA-Public Use
  Company Number: US-HORIZON-RAV-0231-2020

PATIENT
  Age: 14 Year
  Sex: Male

DRUGS (5)
  1. CITRULLINE [Concomitant]
     Active Substance: CITRULLINE
  2. MELATONIN [Concomitant]
     Active Substance: MELATONIN
  3. RAVICTI [Suspect]
     Active Substance: GLYCEROL PHENYLBUTYRATE
     Indication: UREA CYCLE DISORDER
     Dosage: 3.5ML BY MOUTH THREE TIMES DAILY WITH MEALS (TOTAL DAILY DOSE IS 10.5 ML)
     Route: 048
     Dates: start: 20160129
  4. MIRALAX [Concomitant]
     Active Substance: POLYETHYLENE GLYCOL 3350
  5. VITAMIN D2 [Concomitant]
     Active Substance: ERGOCALCIFEROL

REACTIONS (9)
  - Dehydration [Unknown]
  - Dehydration [Unknown]
  - Ammonia increased [Recovered/Resolved]
  - Abdominal pain [Unknown]
  - Vomiting [Unknown]
  - Peripheral coldness [Not Recovered/Not Resolved]
  - Abdominal pain [Unknown]
  - Vomiting [Unknown]
  - Ammonia increased [Recovered/Resolved]

NARRATIVE: CASE EVENT DATE: 2018
